FAERS Safety Report 4464915-0 (Version None)
Quarter: 2004Q4

REPORT INFORMATION
  Report Type: 
  Country: None (occurrence: None)
  Receive Date: 20041004
  Receipt Date: 20040218
  Transmission Date: 20050328
  Serious: No
  Sender: FDA-Public Use
  Company Number: 361820

PATIENT
  Age: 65 Year
  Sex: Female
  Weight: 92 kg

DRUGS (7)
  1. COREG [Suspect]
     Indication: HYPERTENSION
     Dosage: 3.125MG TWICE PER DAY
     Route: 048
     Dates: start: 20031007, end: 20040204
  2. LEVOTHYROXINE SODIUM [Concomitant]
  3. HYDROCHLOROTHIAZIDE [Concomitant]
  4. KLOR-CON [Concomitant]
  5. ASPIRIN [Concomitant]
  6. DIOVAN [Concomitant]
  7. PREMPRO [Concomitant]

REACTIONS (1)
  - DERMATITIS EXFOLIATIVE [None]
